FAERS Safety Report 23502195 (Version 1)
Quarter: 2024Q1

REPORT INFORMATION
  Report Type: Spontaneous
  Country: NL (occurrence: NL)
  Receive Date: 20240208
  Receipt Date: 20240208
  Transmission Date: 20240409
  Serious: Yes (Life-Threatening, Disabling, Other)
  Sender: FDA-Public Use
  Company Number: None

PATIENT
  Age: 35 Year
  Sex: Female
  Weight: 135 kg

DRUGS (10)
  1. METFORMIN HYDROCHLORIDE [Suspect]
     Active Substance: METFORMIN HYDROCHLORIDE
     Indication: Diabetes mellitus
     Dosage: 1 PIECE 3 TIMES A DAY, TABLET MGA
     Route: 065
     Dates: start: 20200101
  2. GLICLAZIDE [Suspect]
     Active Substance: GLICLAZIDE
     Indication: Diabetes mellitus
     Dosage: TABLET MGA 30MG
     Route: 065
     Dates: start: 20200101
  3. HYDROCHLOROTHIAZIDE [Suspect]
     Active Substance: HYDROCHLOROTHIAZIDE
     Indication: Cardiac disorder
     Dosage: 1 X 1 DURING THE DAY
     Route: 065
     Dates: start: 20200101
  4. METOPROLOL TARTRATE [Suspect]
     Active Substance: METOPROLOL TARTRATE
     Indication: Cardiac disorder
     Dosage: 400 MG
     Route: 065
     Dates: start: 20200101
  5. LEVOTHYROXINE SODIUM [Suspect]
     Active Substance: LEVOTHYROXINE SODIUM
     Indication: Graves^ disease
     Dosage: 1 X 1 PER DAG
     Route: 065
     Dates: start: 20200101
  6. ABILIFY MAINTENA [Suspect]
     Active Substance: ARIPIPRAZOLE
     Indication: Product used for unknown indication
     Dosage: 1 INJECTION EVERY 25 DAYS (ABILIFY MAINTENA INJPDR MVA FLACON 400MG PLUS SOLV 2ML)
     Route: 065
     Dates: start: 20230202
  7. CARBASPIRIN CALCIUM [Suspect]
     Active Substance: CARBASPIRIN CALCIUM
     Indication: Cardiac disorder
     Dosage: 1 X 1 TIME PER DAY
     Route: 065
     Dates: start: 20201007
  8. LORAZEPAM [Concomitant]
     Active Substance: LORAZEPAM
     Indication: Product used for unknown indication
     Dosage: TABLET, 2,5 MG (MILLIGRAM)
     Route: 065
  9. OXAZEPAM [Concomitant]
     Active Substance: OXAZEPAM
     Indication: Product used for unknown indication
     Dosage: TABLET, 50 MG (MILLIGRAM)
     Route: 065
  10. AKINETON [Concomitant]
     Active Substance: BIPERIDEN HYDROCHLORIDE
     Indication: Product used for unknown indication
     Dosage: TABLET, 2 MG (MILLIGRAM)
     Route: 065

REACTIONS (5)
  - Swelling [Unknown]
  - Dysphagia [Unknown]
  - Dyspnoea [Unknown]
  - Chest pain [Unknown]
  - Cardiac disorder [Unknown]
